FAERS Safety Report 4634683-8 (Version None)
Quarter: 2005Q2

REPORT INFORMATION
  Report Type: 
  Country: None (occurrence: None)
  Receive Date: 20050413
  Receipt Date: 20050405
  Transmission Date: 20051028
  Serious: Yes (Hospitalization)
  Sender: FDA-Public Use
  Company Number: 2005055002

PATIENT
  Sex: Male
  Weight: 83 kg

DRUGS (5)
  1. LIPITOR [Suspect]
     Indication: METABOLIC DISORDER
     Dosage: 40 MG ( 1 IN 1 D), ORAL
     Route: 048
     Dates: start: 19990701
  2. CARDIZEM [Suspect]
     Indication: ESSENTIAL HYPERTENSION
     Dosage: 180 MG (1 IN 1 D), ORAL
     Route: 048
     Dates: start: 19960101
  3. METOPROLOL TARTRATE [Suspect]
     Indication: ESSENTIAL HYPERTENSION
     Dosage: 50 MG ( 1 IN 1 D), ORAL
     Route: 048
     Dates: start: 19950101
  4. PERINDOPRIL               (PERINDOPRIL) [Suspect]
     Indication: ESSENTIAL HYPERTENSION
     Dosage: 4 MG (1 IN 1 D), ORAL
     Route: 048
     Dates: start: 19970101
  5. CLOPIDOGREL BISULFATE [Suspect]
     Indication: ILL-DEFINED DISORDER
     Dosage: 75 MG (1 IN 1 D), ORAL
     Route: 048
     Dates: start: 19991201, end: 20000329

REACTIONS (3)
  - APLASTIC ANAEMIA [None]
  - PARAESTHESIA [None]
  - RASH PUSTULAR [None]
